FAERS Safety Report 9286436 (Version 2)
Quarter: 2013Q2

REPORT INFORMATION
  Report Type: Report from Study
  Country: CA (occurrence: CA)
  Receive Date: 20130513
  Receipt Date: 20130603
  Transmission Date: 20140414
  Serious: Yes (Other)
  Sender: FDA-Public Use
  Company Number: PHHY2013CA046902

PATIENT
  Sex: Female

DRUGS (5)
  1. ACLASTA [Suspect]
     Indication: OSTEOPOROSIS
     Dosage: 5 MG, UNK
     Route: 042
     Dates: start: 20110519
  2. ACLASTA [Suspect]
     Dosage: 5 MG, UNK
     Route: 042
     Dates: start: 20120522
  3. VITAMIN D [Concomitant]
     Dosage: 2000 IU, DAILY
  4. LIPITOR [Concomitant]
     Dosage: 20 MG, UNK
  5. AAS [Concomitant]
     Dosage: 88 MG, DAILY

REACTIONS (1)
  - Renal failure chronic [Unknown]
